FAERS Safety Report 9222361 (Version 1)
Quarter: 2013Q2

REPORT INFORMATION
  Report Type: Spontaneous
  Country: CA (occurrence: CA)
  Receive Date: 20130410
  Receipt Date: 20130410
  Transmission Date: 20140414
  Serious: Yes (Other)
  Sender: FDA-Public Use
  Company Number: CA-JNJFOC-20130401016

PATIENT
  Sex: Male

DRUGS (1)
  1. INVEGA SUSTENNA [Suspect]
     Indication: PRODUCT USED FOR UNKNOWN INDICATION
     Route: 030
     Dates: start: 201210

REACTIONS (9)
  - Loss of consciousness [Unknown]
  - Fall [Unknown]
  - Mental disorder [Unknown]
  - Dyspnoea [Unknown]
  - Memory impairment [Unknown]
  - Erectile dysfunction [Unknown]
  - Male sexual dysfunction [Unknown]
  - Weight decreased [Unknown]
  - Disturbance in attention [Unknown]
